FAERS Safety Report 17924129 (Version 3)
Quarter: 2020Q4

REPORT INFORMATION
  Report Type: Spontaneous
  Country: DE (occurrence: DE)
  Receive Date: 20200622
  Receipt Date: 20201019
  Transmission Date: 20210113
  Serious: Yes (Life-Threatening, Hospitalization, Disabling, Other)
  Sender: FDA-Public Use
  Company Number: DE-PFIZER INC-2020240078

PATIENT
  Age: 78 Year
  Sex: Male
  Weight: 90 kg

DRUGS (36)
  1. RAMIPRIL. [Suspect]
     Active Substance: RAMIPRIL
     Dosage: UNK
  2. DUPIXENT [Suspect]
     Active Substance: DUPILUMAB
     Dosage: 300 MG, QOW (EVERY 2 WEEKS)
     Route: 058
     Dates: start: 20190910
  3. DUPIXENT [Suspect]
     Active Substance: DUPILUMAB
     Dosage: 200 MG, QOW (EVERY 2 WEEKS)
     Route: 058
     Dates: start: 20191021
  4. PREDNISOLONE. [Concomitant]
     Active Substance: PREDNISOLONE
     Dosage: 5 MG, QD
  5. ASPIRIN [ACETYLSALICYLIC ACID] [Concomitant]
     Active Substance: ASPIRIN
     Dosage: 1 DF
  6. DECORTIN-H [PREDNISOLONE] [Concomitant]
     Active Substance: PREDNISOLONE
     Dosage: UNK, 1X/DAY (1- 0-0 TABLETS DAILY, QD)
  7. PREDNISOLONE. [Concomitant]
     Active Substance: PREDNISOLONE
     Dosage: 15 MG, QD
     Dates: start: 2019
  8. PANTOPRAZOLE [Concomitant]
     Active Substance: PANTOPRAZOLE
     Indication: GASTROINTESTINAL DISORDER PROPHYLAXIS
     Dosage: 20 MG, QD
     Route: 048
  9. DUPIXENT [Suspect]
     Active Substance: DUPILUMAB
     Dosage: 300 MG, QOW (EVERY 2 WEEKS)
     Route: 058
     Dates: start: 20190603
  10. DUPIXENT [Suspect]
     Active Substance: DUPILUMAB
     Dosage: 200 MG, QOW (EVERY 2 WEEKS)
     Route: 058
     Dates: start: 20191105
  11. METAMIZOLE [Concomitant]
     Active Substance: METAMIZOLE
     Indication: PAIN
     Dosage: 20 DROP, 4X/DAY (20 - 20 - 20 - 20 DROPS, QD)
     Route: 048
     Dates: start: 201912
  12. ALGECIA [Concomitant]
     Indication: NEURALGIA
  13. MOMECUTAN [Concomitant]
     Active Substance: MOMETASONE FUROATE
     Dosage: 1 DF, QW
     Route: 061
  14. DUPIXENT [Suspect]
     Active Substance: DUPILUMAB
     Indication: DERMATITIS ATOPIC
     Dosage: 600 MG, 1X
     Route: 058
     Dates: start: 20190506, end: 20190506
  15. DUPIXENT [Suspect]
     Active Substance: DUPILUMAB
     Indication: NEURODERMATITIS
     Dosage: 300 MG, QOW  (EVERY 2 WEEKS)
     Route: 058
     Dates: start: 20190520
  16. DUPIXENT [Suspect]
     Active Substance: DUPILUMAB
     Dosage: 300 MG, QOW (EVERY 2 WEEKS)
     Route: 058
     Dates: start: 20190827
  17. PREDNISOLONE. [Concomitant]
     Active Substance: PREDNISOLONE
     Dosage: 25 MG, QD
  18. GABAPENTIN. [Concomitant]
     Active Substance: GABAPENTIN
     Dosage: 0-0-1
  19. IBUPROFEN. [Concomitant]
     Active Substance: IBUPROFEN
     Indication: ARTHRALGIA
     Dosage: UNK
  20. DUPIXENT [Suspect]
     Active Substance: DUPILUMAB
     Dosage: 300 MG, QOW (EVERY 2 WEEKS)
     Route: 058
     Dates: start: 20191203, end: 20200103
  21. TAMSULOSIN [Concomitant]
     Active Substance: TAMSULOSIN
     Indication: BENIGN PROSTATIC HYPERPLASIA
     Dosage: 0.4 MG, QD
     Route: 048
  22. PREDNISOLONE. [Concomitant]
     Active Substance: PREDNISOLONE
     Dosage: 7.5 MG, QD
     Dates: start: 2019
  23. DUPIXENT [Suspect]
     Active Substance: DUPILUMAB
     Dosage: 300 MG, QOW (EVERY 2 WEEKS)
     Route: 058
     Dates: start: 201907
  24. ATORBEM [Concomitant]
     Indication: HYPOLIPIDAEMIA
     Dosage: 20 MG, QD
     Route: 048
  25. ALGECIA [Concomitant]
     Indication: NEUROLOGICAL SYMPTOM
     Dosage: UNK UNK, QD
     Route: 048
     Dates: start: 201912
  26. MOMECUTAN [Concomitant]
     Active Substance: MOMETASONE FUROATE
     Indication: DERMATITIS ATOPIC
     Dosage: 2 DF, QW
     Route: 061
  27. FENISTIL [Concomitant]
     Active Substance: DIMETHINDENE
     Dosage: UNK UNK, AS NEEDED (0-0-0-2)
  28. ATORBEM [Concomitant]
     Dosage: UNK UNK, 1X/DAY (0-1-1 TABLETS, QD)
  29. SILONDA [Concomitant]
     Dosage: 1 DF
  30. ASPIRIN. [Concomitant]
     Active Substance: ASPIRIN
     Dosage: 100 MG
  31. DECORTIN-H [PREDNISOLONE] [Concomitant]
     Active Substance: PREDNISOLONE
     Dosage: UNK, 1X/DAY (1-0-0 TABLETS DAILY)
  32. DUPIXENT [Suspect]
     Active Substance: DUPILUMAB
     Dosage: 200 MG, QOW (EVERY 2 WEEKS)
     Route: 058
     Dates: start: 20191119
  33. PREDNISOLONE. [Concomitant]
     Active Substance: PREDNISOLONE
     Indication: DERMATITIS ATOPIC
     Dosage: 6 MG, QD
     Route: 048
  34. PREDNISOLONE. [Concomitant]
     Active Substance: PREDNISOLONE
     Dosage: 13.5 MG
  35. PREDNISOLONE. [Concomitant]
     Active Substance: PREDNISOLONE
     Dosage: 6 MG
  36. MOMECUTAN [Concomitant]
     Active Substance: MOMETASONE FUROATE
     Dosage: UNK UNK, ALTERNATE DAY (UNK, QOD FOR 1 WEEK)

REACTIONS (30)
  - Aphasia [Unknown]
  - Confusional state [Unknown]
  - Pain [Unknown]
  - Vasculitis [Unknown]
  - Rebound eczema [Unknown]
  - Pruritus [Unknown]
  - Dermatitis atopic [Unknown]
  - Myalgia [Recovered/Resolved]
  - Agitation [Unknown]
  - Hyporeflexia [Unknown]
  - Disorientation [Recovered/Resolved]
  - Vomiting [Unknown]
  - Hallucination [Recovered/Resolved]
  - Personality change [Recovered/Resolved]
  - Brain oedema [Unknown]
  - Organic brain syndrome [Unknown]
  - Febrile infection [Unknown]
  - Nausea [Unknown]
  - Trigeminal nerve disorder [Unknown]
  - Neuralgia [Unknown]
  - Fatigue [Unknown]
  - Incorrect route of product administration [Unknown]
  - Autoimmune encephalopathy [Recovered/Resolved]
  - Pyrexia [Recovered/Resolved]
  - Meningitis [Unknown]
  - Hearing disability [Unknown]
  - Hypoaesthesia [Unknown]
  - Memory impairment [Unknown]
  - Skin atrophy [Unknown]
  - Hallucination, visual [Unknown]

NARRATIVE: CASE EVENT DATE: 201907
